FAERS Safety Report 24189652 (Version 5)
Quarter: 2024Q4

REPORT INFORMATION
  Report Type: Spontaneous
  Country: JP (occurrence: JP)
  Receive Date: 20240808
  Receipt Date: 20241025
  Transmission Date: 20250114
  Serious: Yes (Other)
  Sender: PFIZER
  Company Number: JP-PFIZER INC-PV202400089366

PATIENT
  Age: 42 Year
  Sex: Male

DRUGS (1)
  1. LORBRENA [Suspect]
     Active Substance: LORLATINIB
     Indication: Non-small cell lung cancer
     Dosage: 100 MG, DAILY
     Route: 048
     Dates: start: 20240622

REACTIONS (19)
  - Rhabdomyolysis [Recovered/Resolved]
  - Neuropathy peripheral [Recovering/Resolving]
  - Dysarthria [Recovering/Resolving]
  - Generalised oedema [Recovered/Resolved]
  - Myalgia [Unknown]
  - Hypercholesterolaemia [Recovering/Resolving]
  - Cognitive disorder [Not Recovered/Not Resolved]
  - Feeling abnormal [Not Recovered/Not Resolved]
  - Cytokine abnormal [Unknown]
  - Feeling hot [Recovering/Resolving]
  - Low density lipoprotein increased [Recovered/Resolved]
  - Hypertriglyceridaemia [Recovered/Resolved]
  - Hyperlipidaemia [Unknown]
  - Cerebral disorder [Unknown]
  - Erythromelalgia [Recovering/Resolving]
  - Sleep disorder [Unknown]
  - Weight increased [Recovered/Resolved]
  - Blood testosterone free decreased [Unknown]
  - Therapeutic response unexpected [Unknown]

NARRATIVE: CASE EVENT DATE: 20240101
